FAERS Safety Report 7798833-7 (Version None)
Quarter: 2011Q4

REPORT INFORMATION
  Report Type: 
  Country: None (occurrence: None)
  Receive Date: 20111006
  Receipt Date: 20110926
  Transmission Date: 20120403
  Serious: Yes (Hospitalization)
  Sender: FDA-Public Use
  Company Number: CA-JNJFOC-20110911585

PATIENT
  Sex: Female
  Weight: 67 kg

DRUGS (4)
  1. ALL OTHER THERAPEUTICS [Concomitant]
     Dosage: AS AND WHEN REQUIRED
     Route: 065
  2. ASACOL [Concomitant]
     Route: 065
  3. PREDNISONE [Concomitant]
     Route: 065
  4. REMICADE [Suspect]
     Indication: CROHN'S DISEASE
     Route: 042
     Dates: start: 20080101

REACTIONS (5)
  - COLITIS ULCERATIVE [None]
  - INFUSION RELATED REACTION [None]
  - DYSPNOEA [None]
  - INFLUENZA LIKE ILLNESS [None]
  - ARTHRITIS INFECTIVE [None]
